FAERS Safety Report 5280896-4 (Version None)
Quarter: 2007Q1

REPORT INFORMATION
  Report Type: 
  Country: None (occurrence: None)
  Receive Date: 20061229
  Receipt Date: 20060626
  Transmission Date: 20070707
  Serious: Yes (Other)
  Sender: FDA-Public Use
  Company Number: 2006UW13487

PATIENT
  Age: 79 Year
  Sex: Male
  Weight: 68.038 kg

DRUGS (1)
  1. CRESTOR [Suspect]
     Indication: BLOOD CHOLESTEROL INCREASED
     Dosage: 5 MG DAILY PO
     Route: 048

REACTIONS (2)
  - DIARRHOEA [None]
  - MEDICATION RESIDUE [None]
